FAERS Safety Report 22168227 (Version 1)
Quarter: 2023Q2

REPORT INFORMATION
  Report Type: Spontaneous
  Country: US (occurrence: None)
  Receive Date: 20230403
  Receipt Date: 20230403
  Transmission Date: 20230722
  Serious: Yes (Hospitalization)
  Sender: FDA-Public Use
  Company Number: None

PATIENT
  Age: 81 Year
  Sex: Female
  Weight: 57.61 kg

DRUGS (18)
  1. ALECENSA [Suspect]
     Active Substance: ALECTINIB HYDROCHLORIDE
     Indication: Lung neoplasm malignant
     Dosage: FREQUENCY : TWICE A DAY;?
     Route: 048
  2. ALEVE [Concomitant]
     Active Substance: NAPROXEN SODIUM
  3. Aspirin [Concomitant]
  4. Bismuth Sucritrate [Concomitant]
  5. DIPHENHYDRAMINE [Concomitant]
  6. DOCUSATE [Concomitant]
  7. HEPARIN [Concomitant]
  8. LEVOTHYROXINE [Concomitant]
  9. LISINOPRIL [Concomitant]
  10. MORPHINE [Concomitant]
  11. NITROGLYCERIN [Concomitant]
  12. ONDANSETRON [Concomitant]
  13. OXYCODONE AND ACETAMINOPHEN [Concomitant]
  14. PANTOPRAZOLE [Concomitant]
  15. POTASSIUM CHLORIDE [Concomitant]
     Active Substance: POTASSIUM CHLORIDE
  16. PROMETHAZINE [Concomitant]
  17. SORBITOL [Concomitant]
     Active Substance: SORBITOL
  18. ZOLPIDEM [Concomitant]
     Active Substance: ZOLPIDEM TARTRATE

REACTIONS (2)
  - Dyspnoea [None]
  - Therapy interrupted [None]

NARRATIVE: CASE EVENT DATE: 20230329
